FAERS Safety Report 4868871-2 (Version None)
Quarter: 2005Q4

REPORT INFORMATION
  Report Type: 
  Country: None (occurrence: None)
  Receive Date: 20051229
  Receipt Date: 20050426
  Transmission Date: 20060501
  Serious: Yes (Hospitalization)
  Sender: FDA-Public Use
  Company Number: US-MERCK-0504USA04969

PATIENT
  Age: 54 Year
  Sex: Male

DRUGS (3)
  1. VIOXX [Suspect]
     Route: 048
  2. DARVOCET-N 100 [Concomitant]
     Route: 065
  3. ASPIRIN [Concomitant]
     Route: 065

REACTIONS (5)
  - BENIGN PROSTATIC HYPERPLASIA [None]
  - CATARACT [None]
  - CORNEAL ABRASION [None]
  - MYOCARDIAL INFARCTION [None]
  - RECTAL HAEMORRHAGE [None]
